FAERS Safety Report 20860306 (Version 1)
Quarter: 2022Q2

REPORT INFORMATION
  Report Type: Spontaneous
  Country: US (occurrence: None)
  Receive Date: 20220520
  Receipt Date: 20220520
  Transmission Date: 20220721
  Serious: Yes (Hospitalization)
  Sender: FDA-Public Use
  Company Number: None

PATIENT
  Age: 73 Year
  Sex: Male
  Weight: 81.19 kg

DRUGS (11)
  1. SPRYCEL [Suspect]
     Active Substance: DASATINIB
     Indication: Myeloid leukaemia
     Dosage: FREQUENCY : DAILY;?
     Route: 048
     Dates: start: 202204, end: 20220429
  2. AMLODIPINE BESYLATE [Concomitant]
  3. ASPIRIN [Concomitant]
  4. HYDREA [Concomitant]
  5. LISINOPRIL [Concomitant]
  6. METOPROLOL [Concomitant]
  7. TARTRATE [Concomitant]
  8. MORPHINE [Concomitant]
  9. SULFATE ER [Concomitant]
  10. TAMSULOSIN HCI [Concomitant]
  11. VITAMIN D [Concomitant]

REACTIONS (3)
  - Dyspnoea [None]
  - Diarrhoea [None]
  - Decreased appetite [None]
